FAERS Safety Report 4728280-3 (Version None)
Quarter: 2005Q3

REPORT INFORMATION
  Report Type: 
  Country: None (occurrence: None)
  Receive Date: 20050727
  Receipt Date: 20050712
  Transmission Date: 20060218
  Serious: Yes (Other)
  Sender: FDA-Public Use
  Company Number: PHEH2005US07775

PATIENT
  Age: 74 Year
  Sex: Female

DRUGS (2)
  1. VISUDYNE [Suspect]
     Dates: start: 20040701, end: 20040701
  2. VISUDYNE [Suspect]

REACTIONS (2)
  - BLOOD PRESSURE INCREASED [None]
  - DEAFNESS UNILATERAL [None]
